FAERS Safety Report 11542017 (Version 1)
Quarter: 2015Q3

REPORT INFORMATION
  Report Type: Spontaneous
  Country: TR (occurrence: TR)
  Receive Date: 20150923
  Receipt Date: 20150923
  Transmission Date: 20151125
  Serious: Yes (Other)
  Sender: FDA-Public Use
  Company Number: TR-BAYER-2015-393690

PATIENT
  Age: 44 Year
  Sex: Female

DRUGS (3)
  1. AVELOX [Suspect]
     Active Substance: MOXIFLOXACIN HYDROCHLORIDE
     Indication: UPPER-AIRWAY COUGH SYNDROME
  2. AVELOX [Suspect]
     Active Substance: MOXIFLOXACIN HYDROCHLORIDE
     Indication: WHITE BLOOD CELL COUNT INCREASED
     Dosage: UNK
  3. AVELOX [Suspect]
     Active Substance: MOXIFLOXACIN HYDROCHLORIDE
     Indication: SINUSITIS

REACTIONS (11)
  - Vomiting [Recovering/Resolving]
  - Burning sensation [None]
  - Pain of skin [None]
  - Haemorrhage [None]
  - Heart rate increased [None]
  - Hypoaesthesia [Recovering/Resolving]
  - Anaphylactic reaction [Recovering/Resolving]
  - Syncope [None]
  - Blood pressure decreased [None]
  - Dyspnoea [Recovering/Resolving]
  - Groin pain [None]
